FAERS Safety Report 17439967 (Version 1)
Quarter: 2020Q1

REPORT INFORMATION
  Report Type: Spontaneous
  Country: US (occurrence: US)
  Receive Date: 20200205
  Receipt Date: 20200205
  Transmission Date: 20200409
  Serious: No
  Sender: FDA-Public Use
  Company Number: None

PATIENT
  Age: 73 Year
  Sex: Male
  Weight: 65.32 kg

DRUGS (4)
  1. OXYCODONE HCL 5MG TAB [Suspect]
     Active Substance: OXYCODONE
     Indication: HERNIA REPAIR
     Dosage: ?          QUANTITY:1 DF DOSAGE FORM;?
     Route: 048
     Dates: start: 20200123, end: 20200124
  2. ATENOLOL. [Concomitant]
     Active Substance: ATENOLOL
  3. CHOLECALCIFEROL (VIT D3) [Concomitant]
  4. B-12 CYANOCOBALAMIN [Concomitant]
     Active Substance: CYANOCOBALAMIN

REACTIONS (3)
  - Abnormal behaviour [None]
  - Hallucination [None]
  - Screaming [None]

NARRATIVE: CASE EVENT DATE: 20200123
